FAERS Safety Report 13147251 (Version 1)
Quarter: 2017Q1

REPORT INFORMATION
  Report Type: Spontaneous
  Country: AU (occurrence: AU)
  Receive Date: 20170125
  Receipt Date: 20170125
  Transmission Date: 20170428
  Serious: Yes (Life-Threatening, Hospitalization, Other)
  Sender: FDA-Public Use
  Company Number: AU-SUN PHARMACEUTICAL INDUSTRIES LTD-2015R1-103836

PATIENT
  Age: 51 Year
  Sex: Female

DRUGS (1)
  1. DOXORUBICIN [Suspect]
     Active Substance: DOXORUBICIN
     Indication: B-CELL SMALL LYMPHOCYTIC LYMPHOMA
     Dosage: UNK
     Route: 065

REACTIONS (1)
  - Right ventricular failure [Recovering/Resolving]
